FAERS Safety Report 5856453-5 (Version None)
Quarter: 2008Q3

REPORT INFORMATION
  Report Type: 
  Country: None (occurrence: None)
  Receive Date: 20080822
  Receipt Date: 20080822
  Transmission Date: 20090109
  Serious: Yes (Life-Threatening, Hospitalization, Disabling)
  Sender: FDA-Public Use
  Company Number: None

PATIENT
  Age: 16 Year
  Sex: Female
  Weight: 77.1115 kg

DRUGS (2)
  1. SEROQUEL [Suspect]
     Indication: AGITATION
     Dosage: 5000 MG PER DAY 300 M 300 A 400 E SLOWLY TO WEEN OFF OF
     Dates: start: 20070802
  2. SEROQUEL [Suspect]
     Indication: AUTISM
     Dosage: 5000 MG PER DAY 300 M 300 A 400 E SLOWLY TO WEEN OFF OF
     Dates: start: 20070802

REACTIONS (16)
  - ABNORMAL BEHAVIOUR [None]
  - AGGRESSION [None]
  - AGITATION [None]
  - ANHEDONIA [None]
  - APPETITE DISORDER [None]
  - ASTHENIA [None]
  - DENTAL CARIES [None]
  - DYSPNOEA [None]
  - INSOMNIA [None]
  - OFF LABEL USE [None]
  - PSYCHOTIC DISORDER [None]
  - RESPIRATORY DISTRESS [None]
  - RESTLESSNESS [None]
  - SELF INJURIOUS BEHAVIOUR [None]
  - URINARY RETENTION [None]
  - WEIGHT INCREASED [None]
